FAERS Safety Report 15751073 (Version 1)
Quarter: 2018Q4

REPORT INFORMATION
  Report Type: Spontaneous
  Country: US (occurrence: US)
  Receive Date: 20181221
  Receipt Date: 20181221
  Transmission Date: 20190205
  Serious: No
  Sender: FDA-Public Use
  Company Number: US-THERAPEUTICSMD-2018TMD00227

PATIENT
  Age: 67 Year
  Sex: Female
  Weight: 58.05 kg

DRUGS (6)
  1. IMVEXXY [Suspect]
     Active Substance: ESTRADIOL
     Dosage: 10 ?G, 2X/WEEK
     Route: 067
     Dates: start: 201808, end: 20180926
  2. MINERAL [Concomitant]
  3. ESTROGEL [Concomitant]
     Active Substance: ESTRADIOL
  4. IMVEXXY [Suspect]
     Active Substance: ESTRADIOL
     Indication: VULVOVAGINAL DRYNESS
     Dosage: 10 ?G, 1X/DAY
     Route: 067
     Dates: start: 201808, end: 201808
  5. MULTIVITAMIN [Concomitant]
     Active Substance: VITAMINS
  6. PROGESTERONE. [Concomitant]
     Active Substance: PROGESTERONE

REACTIONS (2)
  - Off label use [Recovered/Resolved]
  - Cystitis interstitial [Recovered/Resolved]

NARRATIVE: CASE EVENT DATE: 201808
